FAERS Safety Report 5923887-X (Version None)
Quarter: 2008Q4

REPORT INFORMATION
  Report Type: 
  Country: None (occurrence: None)
  Receive Date: 20081020
  Receipt Date: 20081010
  Transmission Date: 20090506
  Serious: Yes (Hospitalization)
  Sender: FDA-Public Use
  Company Number: JP-MERCK-0809USA04697

PATIENT
  Age: 64 Year
  Sex: Male

DRUGS (1)
  1. PEPCID [Suspect]
     Indication: DUODENAL ULCER
     Route: 048
     Dates: end: 20080107

REACTIONS (1)
  - TUBULOINTERSTITIAL NEPHRITIS [None]
